FAERS Safety Report 9005908 (Version 1)
Quarter: 2013Q1

REPORT INFORMATION
  Report Type: Spontaneous
  Country: US (occurrence: US)
  Receive Date: 20130109
  Receipt Date: 20130109
  Transmission Date: 20140127
  Serious: Yes (Other)
  Sender: FDA-Public Use
  Company Number: US-AMGEN-USASP2013001142

PATIENT
  Age: 69 Year
  Sex: Female
  Weight: 72.56 kg

DRUGS (9)
  1. ENBREL [Suspect]
     Indication: RHEUMATOID ARTHRITIS
     Dosage: 50 MG, QWK
     Route: 058
  2. CYMBALTA [Concomitant]
     Dosage: 20 MG, UNK
  3. ATORVASTATIN [Concomitant]
     Dosage: 20 MG, UNK
  4. AMLODIPINE [Concomitant]
     Dosage: 5 MG, UNK
  5. SPIRIVA [Concomitant]
     Dosage: UNK
  6. SYMBICORT [Concomitant]
     Dosage: 80-4.5
  7. VITAMIN C                          /00008001/ [Concomitant]
     Dosage: 500 MG, UNK
  8. MULTIVITAMINS, PLAIN [Concomitant]
     Dosage: UNK
  9. CALCIUM [Concomitant]
     Dosage: 500 MG, UNK

REACTIONS (4)
  - Heart valve operation [Unknown]
  - Pain in extremity [Unknown]
  - Arthralgia [Unknown]
  - Fatigue [Unknown]
